FAERS Safety Report 8348689-9 (Version None)
Quarter: 2012Q2

REPORT INFORMATION
  Report Type: 
  Country: None (occurrence: None)
  Receive Date: 20120510
  Receipt Date: 20120427
  Transmission Date: 20120825
  Serious: Yes (Other)
  Sender: FDA-Public Use
  Company Number: DE-ELI_LILLY_AND_COMPANY-DE201202002823

PATIENT
  Age: 67 Year
  Sex: Female

DRUGS (9)
  1. AZATHIOPRINE [Concomitant]
  2. INSULIN [Concomitant]
  3. FORTEO [Suspect]
     Indication: OSTEOPOROSIS
     Dosage: UNK, QD
     Route: 058
     Dates: start: 20110722
  4. TILIDIN [Concomitant]
  5. IBUPROFEN [Concomitant]
  6. CALCIUM [Concomitant]
  7. CORTISONE ACETATE [Concomitant]
  8. CARVEDILOL [Concomitant]
  9. VITAMIN D [Concomitant]

REACTIONS (7)
  - PRURITUS [None]
  - SKIN EXFOLIATION [None]
  - SWELLING FACE [None]
  - RASH ERYTHEMATOUS [None]
  - HYPERSENSITIVITY [None]
  - DRY SKIN [None]
  - ERYTHEMA [None]
